FAERS Safety Report 9173728 (Version 1)
Quarter: 2013Q1

REPORT INFORMATION
  Report Type: Spontaneous
  Country: GB (occurrence: GB)
  Receive Date: 20130320
  Receipt Date: 20130320
  Transmission Date: 20140127
  Serious: Yes (Hospitalization)
  Sender: FDA-Public Use
  Company Number: GB-JNJFOC-2003183263GB

PATIENT
  Age: 49 Year
  Sex: Female

DRUGS (5)
  1. IBUPROFEN [Suspect]
     Indication: UNEVALUABLE EVENT
     Dosage: DAILY DOSE TEXT: UNSPECIFIED
  2. VALPROATE SODIUM [Suspect]
     Indication: EPILEPSY
     Dosage: DAILY DOSE TEXT: 6 G, 1 IN 1 TOTAL
     Dates: start: 20030808, end: 20030808
  3. DIAZEPAM [Suspect]
     Indication: UNEVALUABLE EVENT
     Dosage: DAILY DOSE TEXT: UNSPECIFIED
     Route: 065
  4. LANSOPRAZOLE [Suspect]
     Indication: UNEVALUABLE EVENT
     Dosage: DAILY DOSE TEXT: UNSPECIFIED
     Route: 065
  5. CLOZAPINE [Concomitant]
     Indication: PRODUCT USED FOR UNKNOWN INDICATION
     Dosage: DAILY DOSE TEXT: UNSPECIFIED

REACTIONS (6)
  - Somnolence [Recovered/Resolved]
  - Ataxia [Recovered/Resolved]
  - Feeling hot [Recovered/Resolved]
  - Overdose [Unknown]
  - Hyperhidrosis [Recovered/Resolved]
  - Disturbance in attention [Recovered/Resolved]
